FAERS Safety Report 13643797 (Version 1)
Quarter: 2017Q2

REPORT INFORMATION
  Report Type: Spontaneous
  Country: FR (occurrence: FR)
  Receive Date: 20170612
  Receipt Date: 20170612
  Transmission Date: 20170830
  Serious: Yes (Other)
  Sender: FDA-Public Use
  Company Number: FR-TEVA-775491ROM

PATIENT
  Sex: Female

DRUGS (1)
  1. MODIODAL 100 MG [Suspect]
     Active Substance: MODAFINIL
     Indication: NARCOLEPSY
     Dosage: 2 DOSAGE FORMS DAILY;
     Route: 048
     Dates: start: 2013, end: 20170327

REACTIONS (2)
  - Amnesia [Recovered/Resolved]
  - Aggression [Recovered/Resolved]

NARRATIVE: CASE EVENT DATE: 2013
